FAERS Safety Report 10348152 (Version 2)
Quarter: 2015Q2

REPORT INFORMATION
  Report Type: Spontaneous
  Country: US (occurrence: US)
  Receive Date: 20140729
  Receipt Date: 20150610
  Transmission Date: 20150821
  Serious: Yes (Other)
  Sender: FDA-Public Use
  Company Number: US-BAYER-2014-112769

PATIENT
  Age: 16 Year
  Sex: Female

DRUGS (2)
  1. YAZ [Suspect]
     Active Substance: DROSPIRENONE\ETHINYL ESTRADIOL
     Dosage: UNK
     Dates: start: 200805, end: 200810
  2. YASMIN [Suspect]
     Active Substance: DROSPIRENONE\ETHINYL ESTRADIOL
     Dosage: UNK
     Dates: start: 200805, end: 200810

REACTIONS (12)
  - Chest pain [None]
  - Cerebral artery thrombosis [None]
  - Dyspnoea [None]
  - Injury [None]
  - Anhedonia [None]
  - Fear of disease [None]
  - Pulmonary hypertension [None]
  - Anxiety [None]
  - Emotional distress [None]
  - General physical health deterioration [None]
  - Pain [None]
  - Cerebrovascular accident [None]

NARRATIVE: CASE EVENT DATE: 20081022
